FAERS Safety Report 9413163 (Version 1)
Quarter: 2013Q3

REPORT INFORMATION
  Report Type: Report from Study
  Country: US (occurrence: US)
  Receive Date: 20130722
  Receipt Date: 20130722
  Transmission Date: 20140515
  Serious: Yes (Hospitalization)
  Sender: FDA-Public Use
  Company Number: US-SANOFI-AVENTIS-2013SA073010

PATIENT
  Age: 60 Year
  Sex: Male

DRUGS (5)
  1. ASPIRIN [Suspect]
     Indication: ANTIPLATELET THERAPY
     Route: 048
  2. ASPIRIN [Suspect]
     Indication: ANTIPLATELET THERAPY
     Route: 048
  3. PLAVIX [Suspect]
     Indication: ANTIPLATELET THERAPY
     Route: 048
  4. EFFIENT [Suspect]
     Indication: ANTIPLATELET THERAPY
     Route: 048
  5. EFFIENT [Suspect]
     Indication: ANTIPLATELET THERAPY
     Route: 048

REACTIONS (7)
  - Deep vein thrombosis [Unknown]
  - Pulmonary embolism [Unknown]
  - Tachypnoea [Unknown]
  - Tachycardia [Unknown]
  - Depressed level of consciousness [Recovered/Resolved]
  - Arterial injury [Unknown]
  - Haematoma [Unknown]
